FAERS Safety Report 8043610-5 (Version None)
Quarter: 2012Q1

REPORT INFORMATION
  Report Type: 
  Country: None (occurrence: None)
  Receive Date: 20120112
  Receipt Date: 20120104
  Transmission Date: 20120608
  Serious: Yes (Death, Hospitalization, Other)
  Sender: FDA-Public Use
  Company Number: US-BAXTER-2009BH010665

PATIENT
  Age: 49 Year
  Sex: Female

DRUGS (28)
  1. VICODIN [Concomitant]
     Indication: PRODUCT USED FOR UNKNOWN INDICATION
     Route: 065
  2. HEPARIN SODIUM 5,000 UNITS IN DEXTROSE 5% [Suspect]
     Indication: PRODUCT USED FOR UNKNOWN INDICATION
     Route: 042
     Dates: start: 20080225, end: 20080524
  3. IMODIUM A-D [Concomitant]
     Indication: PRODUCT USED FOR UNKNOWN INDICATION
     Route: 065
  4. NEPHROCAPS [Concomitant]
     Indication: PRODUCT USED FOR UNKNOWN INDICATION
     Route: 065
  5. PANTOPRAZOLE [Concomitant]
     Route: 065
  6. ZINC SULFATE [Concomitant]
     Indication: PRODUCT USED FOR UNKNOWN INDICATION
     Route: 065
  7. ZOFRAN [Concomitant]
     Indication: PRODUCT USED FOR UNKNOWN INDICATION
     Route: 065
  8. MEGACE [Concomitant]
     Indication: PRODUCT USED FOR UNKNOWN INDICATION
     Route: 065
  9. ALBUMIN (HUMAN) [Concomitant]
     Indication: PRODUCT USED FOR UNKNOWN INDICATION
     Route: 065
  10. DARVOCET-N 50 [Concomitant]
     Indication: PRODUCT USED FOR UNKNOWN INDICATION
     Route: 065
  11. ARMODAFINIL [Concomitant]
     Indication: PRODUCT USED FOR UNKNOWN INDICATION
     Route: 065
  12. FLORINEF [Concomitant]
     Indication: PRODUCT USED FOR UNKNOWN INDICATION
     Route: 065
  13. ACETAMINOPHEN AND HYDROCODONE BITARTRATE [Concomitant]
     Indication: PRODUCT USED FOR UNKNOWN INDICATION
     Route: 065
  14. SYNTHROID [Concomitant]
     Indication: PRODUCT USED FOR UNKNOWN INDICATION
     Route: 065
  15. THYROID TAB [Concomitant]
     Indication: PRODUCT USED FOR UNKNOWN INDICATION
     Route: 065
  16. ASPIRIN [Concomitant]
     Indication: PRODUCT USED FOR UNKNOWN INDICATION
     Route: 065
  17. LEXAPRO [Concomitant]
     Indication: PRODUCT USED FOR UNKNOWN INDICATION
     Route: 065
  18. PANTOPRAZOLE [Concomitant]
     Indication: PRODUCT USED FOR UNKNOWN INDICATION
     Route: 065
  19. VITAMIN C [Concomitant]
     Indication: PRODUCT USED FOR UNKNOWN INDICATION
     Route: 065
  20. ALBUTEROL [Concomitant]
     Indication: PRODUCT USED FOR UNKNOWN INDICATION
     Route: 055
  21. RESTORIL [Concomitant]
     Indication: PRODUCT USED FOR UNKNOWN INDICATION
     Route: 065
  22. SUCRALFATE [Concomitant]
     Indication: PRODUCT USED FOR UNKNOWN INDICATION
     Route: 065
  23. HEPARIN SODIUM INJECTION [Suspect]
     Indication: AORTIC VALVE REPLACEMENT
     Route: 042
     Dates: start: 20070207, end: 20080524
  24. MULTI-VITAMINS [Concomitant]
     Indication: PRODUCT USED FOR UNKNOWN INDICATION
     Route: 065
  25. EPOGEN [Concomitant]
     Indication: PRODUCT USED FOR UNKNOWN INDICATION
     Route: 065
  26. MEROPENEM [Concomitant]
     Indication: PRODUCT USED FOR UNKNOWN INDICATION
     Route: 065
  27. XANAX [Concomitant]
     Indication: PRODUCT USED FOR UNKNOWN INDICATION
     Route: 065
  28. WARFARIN SODIUM [Concomitant]
     Indication: PRODUCT USED FOR UNKNOWN INDICATION
     Route: 065

REACTIONS (31)
  - HAEMOTHORAX [None]
  - GANGRENE [None]
  - MALNUTRITION [None]
  - OEDEMA [None]
  - BLINDNESS [None]
  - PNEUMONIA BACTERIAL [None]
  - MYOPATHY [None]
  - DYSPNOEA [None]
  - TACHYCARDIA [None]
  - ATRIOVENTRICULAR BLOCK [None]
  - MUSCULAR WEAKNESS [None]
  - DEPRESSION [None]
  - INFECTION [None]
  - OPTIC ATROPHY [None]
  - HYPERTENSION [None]
  - PROTEIN TOTAL DECREASED [None]
  - PAIN [None]
  - RESPIRATORY FAILURE [None]
  - HYPOTENSION [None]
  - DEEP VEIN THROMBOSIS [None]
  - DEVICE DAMAGE [None]
  - OPTIC NERVE INFARCTION [None]
  - ASTHENIA [None]
  - BACTERIAL SEPSIS [None]
  - NORMOCHROMIC NORMOCYTIC ANAEMIA [None]
  - THORACIC HAEMORRHAGE [None]
  - RENAL FAILURE CHRONIC [None]
  - PLEURAL EFFUSION [None]
  - RENAL FAILURE ACUTE [None]
  - ASCITES [None]
  - DECUBITUS ULCER [None]
